FAERS Safety Report 10564875 (Version 4)
Quarter: 2014Q4

REPORT INFORMATION
  Report Type: Report from Study
  Country: US (occurrence: US)
  Receive Date: 20141105
  Receipt Date: 20141205
  Transmission Date: 20150529
  Serious: Yes (Other)
  Sender: FDA-Public Use
  Company Number: US-ROCHE-1478804

PATIENT
  Age: 58 Year
  Sex: Male
  Weight: 136.2 kg

DRUGS (5)
  1. ERIVEDGE [Suspect]
     Active Substance: VISMODEGIB
     Indication: BASAL CELL CARCINOMA
     Route: 048
     Dates: start: 2014, end: 20141002
  2. DOXEPIN [Concomitant]
     Active Substance: DOXEPIN
     Indication: PRURITUS
     Route: 048
  3. ERIVEDGE [Suspect]
     Active Substance: VISMODEGIB
     Indication: BASAL CELL CARCINOMA
     Route: 048
  4. TERAZOSIN [Concomitant]
     Active Substance: TERAZOSIN\TERAZOSIN HYDROCHLORIDE
     Indication: HYPERTENSION
     Route: 048
  5. ALEVE [Concomitant]
     Active Substance: NAPROXEN SODIUM
     Indication: ARTHRALGIA
     Route: 065

REACTIONS (8)
  - Drug dose omission [Unknown]
  - Dehydration [Unknown]
  - Ill-defined disorder [Unknown]
  - Blood test abnormal [Recovering/Resolving]
  - Pruritus generalised [Unknown]
  - Muscle spasms [Recovering/Resolving]
  - Rhabdomyolysis [Recovering/Resolving]
  - Muscle atrophy [Recovering/Resolving]

NARRATIVE: CASE EVENT DATE: 201410
